FAERS Safety Report 23622310 (Version 1)
Quarter: 2024Q1

REPORT INFORMATION
  Report Type: Spontaneous
  Country: US (occurrence: None)
  Receive Date: 20240312
  Receipt Date: 20240312
  Transmission Date: 20240410
  Serious: No
  Sender: FDA-Public Use
  Company Number: None

PATIENT
  Age: 15 Year
  Sex: Female
  Weight: 100.6 kg

DRUGS (21)
  1. CYCLOPHOSPHAMIDE [Suspect]
     Active Substance: CYCLOPHOSPHAMIDE
     Dates: end: 20240223
  2. DACTINOMYCIN [Suspect]
     Active Substance: DACTINOMYCIN
     Dates: end: 20240223
  3. VINCRISTINE SULFATE [Suspect]
     Active Substance: VINCRISTINE SULFATE
     Dates: start: 20240216, end: 20240216
  4. VINORELBINE TARTRATE [Suspect]
     Active Substance: VINORELBINE TARTRATE
     Dates: end: 20240301
  5. ALBUTEROL SULFATE [Concomitant]
     Active Substance: ALBUTEROL SULFATE
  6. CHLORHEXIDINE [Concomitant]
     Active Substance: CHLORHEXIDINE\CHLORHEXIDINE GLUCONATE
  7. Onlanzapine [Concomitant]
  8. CALCIUM CARBONATE [Concomitant]
     Active Substance: CALCIUM CARBONATE
  9. CLONIDINE [Concomitant]
     Active Substance: CLONIDINE
  10. DOCUSATE SODIUM [Concomitant]
     Active Substance: DOCUSATE SODIUM
  11. HEPARIN [Concomitant]
     Active Substance: HEPARIN SODIUM
  12. HYDROXYZINE HYDROCHLORIDE [Concomitant]
     Active Substance: HYDROXYZINE HYDROCHLORIDE
  13. LACTULOSE [Concomitant]
     Active Substance: LACTULOSE
  14. LIDOCAINE\PRILOCAINE [Concomitant]
     Active Substance: LIDOCAINE\PRILOCAINE
  15. ONDANSETRON [Concomitant]
     Active Substance: ONDANSETRON
  16. POLYETHYLENE GLYCOL [Concomitant]
     Active Substance: POLYETHYLENE GLYCOL
  17. PREGABALIN [Concomitant]
     Active Substance: PREGABALIN
  18. SCOPOLAMINE [Concomitant]
     Active Substance: SCOPOLAMINE
  19. SENNOSIDES [Concomitant]
     Active Substance: SENNOSIDES
  20. SERTRALINE [Concomitant]
     Active Substance: SERTRALINE HYDROCHLORIDE
  21. SULFAMETHOXAZOLE\TRIMETHOPRIM [Concomitant]
     Active Substance: SULFAMETHOXAZOLE\TRIMETHOPRIM

REACTIONS (5)
  - Gait disturbance [None]
  - Peroneal nerve palsy [None]
  - Motor neurone disease [None]
  - Peripheral sensory neuropathy [None]
  - Therapy interrupted [None]

NARRATIVE: CASE EVENT DATE: 20240304
